FAERS Safety Report 4889074-1 (Version None)
Quarter: 2005Q4

REPORT INFORMATION
  Report Type: 
  Country: None (occurrence: None)
  Receive Date: 20051215
  Receipt Date: 20050929
  Transmission Date: 20060501
  Serious: Yes (Other)
  Sender: FDA-Public Use
  Company Number: 2005135496

PATIENT
  Sex: Male

DRUGS (1)
  1. BEXTRA [Suspect]
     Indication: DEEP VEIN THROMBOSIS
     Dates: start: 20031201, end: 20040101

REACTIONS (1)
  - DEEP VEIN THROMBOSIS [None]
